FAERS Safety Report 5551969-3 (Version None)
Quarter: 2007Q4

REPORT INFORMATION
  Report Type: 
  Country: None (occurrence: None)
  Receive Date: 20071212
  Receipt Date: 20071130
  Transmission Date: 20080405
  Serious: Yes (Other)
  Sender: FDA-Public Use
  Company Number: US-PFIZER INC-2007101458

PATIENT
  Sex: Male
  Weight: 97 kg

DRUGS (3)
  1. CAVERJECT [Suspect]
     Indication: ERECTILE DYSFUNCTION
  2. ASPIRIN [Concomitant]
  3. VITAMIN CAP [Concomitant]

REACTIONS (3)
  - CONTUSION [None]
  - DRUG ADMINISTRATION ERROR [None]
  - ERECTION INCREASED [None]
